FAERS Safety Report 10199526 (Version 1)
Quarter: 2014Q2

REPORT INFORMATION
  Report Type: Spontaneous
  Country: AU (occurrence: AU)
  Receive Date: 20140527
  Receipt Date: 20140527
  Transmission Date: 20141212
  Serious: Yes (Other)
  Sender: FDA-Public Use
  Company Number: AU-MYLANLABS-2014S1011181

PATIENT
  Age: 66 Year
  Sex: Female

DRUGS (2)
  1. ENDEP [Suspect]
     Indication: PRODUCT USED FOR UNKNOWN INDICATION
  2. NEXIUM [Concomitant]
     Indication: PRODUCT USED FOR UNKNOWN INDICATION

REACTIONS (8)
  - Rheumatoid arthritis [Recovering/Resolving]
  - Oral pain [Unknown]
  - Oropharyngeal pain [Unknown]
  - Throat irritation [Unknown]
  - Gastrooesophageal reflux disease [Unknown]
  - Arthralgia [Recovering/Resolving]
  - Speech disorder [Unknown]
  - Disturbance in social behaviour [Unknown]
